FAERS Safety Report 12584272 (Version 1)
Quarter: 2016Q3

REPORT INFORMATION
  Report Type: Report from Study
  Country: BR (occurrence: BR)
  Receive Date: 20160722
  Receipt Date: 20160722
  Transmission Date: 20161109
  Serious: Yes (Other)
  Sender: FDA-Public Use
  Company Number: PHHY2016BR100141

PATIENT
  Age: 76 Year
  Sex: Male
  Weight: 68 kg

DRUGS (1)
  1. FORASEQ [Suspect]
     Active Substance: BUDESONIDE\FORMOTEROL FUMARATE
     Indication: COUGH
     Dosage: 1 DF (FORMOTEROL FUMARATE UNKNOWN, BUDESONIDE 400 MCG), BID
     Route: 055

REACTIONS (7)
  - Immunodeficiency [Unknown]
  - Throat irritation [Recovering/Resolving]
  - Dysphagia [Unknown]
  - Ear discomfort [Unknown]
  - Cough [Recovering/Resolving]
  - Product use issue [Unknown]
  - Oropharyngeal pain [Unknown]

NARRATIVE: CASE EVENT DATE: 20160718
